FAERS Safety Report 8055669-X (Version None)
Quarter: 2012Q1

REPORT INFORMATION
  Report Type: 
  Country: None (occurrence: None)
  Receive Date: 20120119
  Receipt Date: 20120111
  Transmission Date: 20120608
  Serious: Yes (Hospitalization)
  Sender: FDA-Public Use
  Company Number: US-US-EMD SERONO, INC.-7106504

PATIENT
  Sex: Male

DRUGS (3)
  1. AMITRIPTYLINE HCL [Concomitant]
  2. REBIF [Suspect]
     Indication: MULTIPLE SCLEROSIS
     Route: 058
     Dates: start: 20101228
  3. REBIF [Suspect]
     Route: 058
     Dates: start: 20111118, end: 20111124

REACTIONS (1)
  - PULMONARY MYCOSIS [None]
